FAERS Safety Report 5070232-0 (Version None)
Quarter: 2006Q3

REPORT INFORMATION
  Report Type: 
  Country: None (occurrence: None)
  Receive Date: 20060731
  Receipt Date: 20060713
  Transmission Date: 20061208
  Serious: Yes (Other)
  Sender: FDA-Public Use
  Company Number: 8017998

PATIENT
  Age: 29 Year
  Sex: Female

DRUGS (10)
  1. PREDNISOLONE [Suspect]
     Indication: HERPES GESTATIONIS
     Dosage: 60  MG /D TBD
     Route: 061
  2. PREDNISOLONE [Suspect]
     Indication: HERPES GESTATIONIS
     Dosage: 30 MG /D TBD
     Route: 061
  3. PREDNISOLONE [Suspect]
     Indication: HERPES GESTATIONIS
     Dosage: 25 MG /D TBD
     Route: 061
  4. PREDNISOLONE [Suspect]
     Indication: HERPES GESTATIONIS
     Dosage: TBD
     Route: 061
  5. AMOXICILLIN [Concomitant]
  6. CHLORPHENIRAMINE MALEATE [Concomitant]
  7. HYDROCORTISONE TAB [Concomitant]
  8. POTASSIUM PERMANGANATE SOAK [Concomitant]
  9. BETAMETHASONE [Concomitant]
  10. ERYTHROMYCIN [Concomitant]

REACTIONS (4)
  - DENTAL OPERATION [None]
  - DRUG EXPOSURE DURING PREGNANCY [None]
  - GESTATIONAL DIABETES [None]
  - HYPERGLYCAEMIA [None]
